FAERS Safety Report 10427081 (Version 1)
Quarter: 2014Q3

REPORT INFORMATION
  Report Type: Spontaneous
  Country: US (occurrence: US)
  Receive Date: 20140903
  Receipt Date: 20140903
  Transmission Date: 20150326
  Serious: No
  Sender: FDA-Public Use
  Company Number: US-BANPHARM-20141993

PATIENT
  Sex: Female

DRUGS (2)
  1. ZADITOR [Suspect]
     Active Substance: KETOTIFEN FUMARATE
  2. ZYRTEC [Suspect]
     Active Substance: CETIRIZINE HYDROCHLORIDE
     Indication: HYPERSENSITIVITY
     Dosage: 1 DF, QD,
     Route: 048
     Dates: start: 20131221, end: 20131223

REACTIONS (2)
  - Vision blurred [Recovered/Resolved]
  - Ocular hyperaemia [Recovering/Resolving]

NARRATIVE: CASE EVENT DATE: 20131221
